FAERS Safety Report 10241262 (Version 1)
Quarter: 2014Q2

REPORT INFORMATION
  Report Type: Report from Study
  Country: BR (occurrence: BR)
  Receive Date: 20140617
  Receipt Date: 20140617
  Transmission Date: 20141212
  Serious: Yes (Other)
  Sender: FDA-Public Use
  Company Number: PHHY2014BR074261

PATIENT
  Age: 40 Year
  Sex: Male
  Weight: 93 kg

DRUGS (2)
  1. DIOVAN TRIPLE [Suspect]
     Indication: HYPERTENSION
     Dosage: 1 DF (160/12,5/5 MG), DAILY
     Route: 048
     Dates: end: 201404
  2. FLUOXETINE [Concomitant]
     Indication: MEDICAL DIET
     Dosage: UNK UKN, UNK

REACTIONS (2)
  - Apnoea [Recovering/Resolving]
  - Hypertension [Recovering/Resolving]
